FAERS Safety Report 6962084-6 (Version None)
Quarter: 2010Q3

REPORT INFORMATION
  Report Type: 
  Country: None (occurrence: None)
  Receive Date: 20100902
  Receipt Date: 20100824
  Transmission Date: 20110219
  Serious: Yes (Other)
  Sender: FDA-Public Use
  Company Number: CA-JNJFOC-20100808523

PATIENT
  Sex: Female
  Weight: 56.4 kg

DRUGS (4)
  1. REMICADE [Suspect]
     Indication: CROHN'S DISEASE
     Route: 042
  2. REMICADE [Suspect]
     Dosage: ON THERAPY FOR ^MANY YEARS^
     Route: 042
  3. BENADRYL [Concomitant]
     Indication: PREMEDICATION
     Route: 042
  4. SOLU-CORTEF [Concomitant]
     Indication: PREMEDICATION
     Route: 042

REACTIONS (9)
  - COLD SWEAT [None]
  - HEADACHE [None]
  - INFUSION RELATED REACTION [None]
  - NAUSEA [None]
  - PAIN IN EXTREMITY [None]
  - PALLOR [None]
  - SKIN DISCOLOURATION [None]
  - SYNCOPE [None]
  - VOMITING [None]
